FAERS Safety Report 26131835 (Version 1)
Quarter: 2025Q4

REPORT INFORMATION
  Report Type: Spontaneous
  Country: US (occurrence: None)
  Receive Date: 20251208
  Receipt Date: 20251208
  Transmission Date: 20260117
  Serious: No
  Sender: HALOZYME
  Company Number: US-HALOZYME THERAPEUTICS, INC.-2024-US-TX -09306

PATIENT
  Age: 49 Year

DRUGS (1)
  1. XYOSTED [Suspect]
     Active Substance: TESTOSTERONE ENANTHATE
     Indication: Hypopituitarism
     Dosage: 100 MILLIGRAM
     Route: 058

REACTIONS (1)
  - Injection site pain [Unknown]
